FAERS Safety Report 5781755-0 (Version None)
Quarter: 2008Q2

REPORT INFORMATION
  Report Type: 
  Country: None (occurrence: None)
  Receive Date: 20080623
  Receipt Date: 20080611
  Transmission Date: 20081010
  Serious: Yes (Other)
  Sender: FDA-Public Use
  Company Number: US-BAYER-200812420BCC

PATIENT
  Age: 68 Year
  Sex: Male
  Weight: 73 kg

DRUGS (7)
  1. BAYER HEART ADVANTAGE [Suspect]
     Indication: ISCHAEMIC HEART DISEASE PROPHYLAXIS
     Dosage: TOTAL DAILY DOSE: 81 MG  UNIT DOSE: 81 MG
     Route: 048
     Dates: start: 20080610, end: 20080610
  2. ASPIRIN [Suspect]
     Indication: ISCHAEMIC HEART DISEASE PROPHYLAXIS
     Dosage: TOTAL DAILY DOSE: 81 MG  UNIT DOSE: 81 MG
     Route: 048
     Dates: start: 20040101
  3. DIOVAN [Concomitant]
  4. METAMUCIL [Concomitant]
  5. GAS X [Concomitant]
  6. CENTRUM [Concomitant]
  7. CLONAZEPAM [Concomitant]

REACTIONS (4)
  - HEPATITIS C [None]
  - NOCTURIA [None]
  - PROSTATE CANCER [None]
  - RECTAL HAEMORRHAGE [None]
